FAERS Safety Report 11636794 (Version 2)
Quarter: 2015Q4

REPORT INFORMATION
  Report Type: Spontaneous
  Country: BR (occurrence: BR)
  Receive Date: 20151016
  Receipt Date: 20151021
  Transmission Date: 20160304
  Serious: Yes (Other)
  Sender: FDA-Public Use
  Company Number: BR-NOVOPROD-462483

PATIENT
  Age: 56 Year
  Sex: Male
  Weight: 60 kg

DRUGS (3)
  1. NOVORAPID [Suspect]
     Active Substance: INSULIN ASPART
     Indication: PRODUCT USED FOR UNKNOWN INDICATION
     Dosage: UNK (8U)
     Route: 065
  2. NOVORAPID [Suspect]
     Active Substance: INSULIN ASPART
     Dosage: UNK (5U )
     Route: 065
  3. LANTUS [Concomitant]
     Active Substance: INSULIN GLARGINE
     Dosage: UNK (30 U)

REACTIONS (6)
  - Blood glucose fluctuation [Recovered/Resolved]
  - Blood glucose decreased [Unknown]
  - Hypoglycaemia [Unknown]
  - Cataract operation [Unknown]
  - Cataract operation [Recovered/Resolved]
  - Device malfunction [Unknown]

NARRATIVE: CASE EVENT DATE: 201508
